FAERS Safety Report 21584852 (Version 2)
Quarter: 2023Q2

REPORT INFORMATION
  Report Type: Spontaneous
  Country: US (occurrence: US)
  Receive Date: 20221111
  Receipt Date: 20230501
  Transmission Date: 20230722
  Serious: No
  Sender: FDA-Public Use
  Company Number: US-SA-SAC20221107000572

PATIENT
  Sex: Male

DRUGS (1)
  1. AUBAGIO [Suspect]
     Active Substance: TERIFLUNOMIDE
     Indication: Multiple sclerosis
     Dosage: 14MG; QD
     Route: 048
     Dates: start: 20200123

REACTIONS (10)
  - Musculoskeletal stiffness [Unknown]
  - Muscle spasticity [Unknown]
  - Sensory disturbance [Unknown]
  - Fatigue [Not Recovered/Not Resolved]
  - Bladder disorder [Unknown]
  - Cognitive disorder [Unknown]
  - Fall [Unknown]
  - Pain [Unknown]
  - Mobility decreased [Unknown]
  - Product dose omission in error [Unknown]
